FAERS Safety Report 9700923 (Version 1)
Quarter: 2013Q4

REPORT INFORMATION
  Report Type: Spontaneous
  Country: US (occurrence: None)
  Receive Date: 20131120
  Receipt Date: 20131120
  Transmission Date: 20140711
  Serious: No
  Sender: FDA-Public Use
  Company Number: None

PATIENT
  Age: 8 Year
  Sex: Female

DRUGS (1)
  1. METHYLPHENIDATE [Suspect]
     Indication: ATTENTION DEFICIT/HYPERACTIVITY DISORDER
     Route: 048
     Dates: start: 20131023, end: 20131108

REACTIONS (8)
  - Product substitution issue [None]
  - Drug effect decreased [None]
  - Abnormal behaviour [None]
  - Thinking abnormal [None]
  - Hallucination, auditory [None]
  - Nervousness [None]
  - Blepharospasm [None]
  - Confusional state [None]
